FAERS Safety Report 15632358 (Version 1)
Quarter: 2018Q4

REPORT INFORMATION
  Report Type: Spontaneous
  Country: DK (occurrence: DK)
  Receive Date: 20181119
  Receipt Date: 20181119
  Transmission Date: 20190205
  Serious: Yes (Life-Threatening, Hospitalization)
  Sender: FDA-Public Use
  Company Number: DK-PFIZER INC-2018471478

PATIENT
  Age: 63 Year
  Sex: Female

DRUGS (2)
  1. TRANEXAMIC ACID. [Suspect]
     Active Substance: TRANEXAMIC ACID
     Indication: HAEMORRHAGE PROPHYLAXIS
     Dosage: UNK
     Route: 042
     Dates: start: 20170517, end: 20170517
  2. DICLOCIL [Concomitant]
     Active Substance: DICLOXACILLIN SODIUM
     Indication: ANTIBIOTIC PROPHYLAXIS
     Dosage: UNK
     Dates: start: 20170517, end: 20170517

REACTIONS (8)
  - Endotracheal intubation [Recovered/Resolved with Sequelae]
  - Rash [Recovered/Resolved]
  - Heart rate abnormal [Recovered/Resolved]
  - Blood pressure abnormal [Recovered/Resolved]
  - Swelling face [Recovered/Resolved]
  - Pharyngeal oedema [Recovered/Resolved]
  - Anaphylactic shock [Recovered/Resolved]
  - Pain [Not Recovered/Not Resolved]

NARRATIVE: CASE EVENT DATE: 20170517
